FAERS Safety Report 16779202 (Version 1)
Quarter: 2019Q3

REPORT INFORMATION
  Report Type: Spontaneous
  Country: GB (occurrence: GB)
  Receive Date: 20190906
  Receipt Date: 20190906
  Transmission Date: 20191005
  Serious: Yes (Other)
  Sender: FDA-Public Use
  Company Number: GB-TEVA-2019-GB-1102828

PATIENT
  Age: 82 Year
  Sex: Male
  Weight: 82 kg

DRUGS (7)
  1. WARFARIN SODIUM. [Concomitant]
     Active Substance: WARFARIN SODIUM
     Dosage: USE AS DIRECTED
     Dates: start: 20180917
  2. ATENOLOL. [Concomitant]
     Active Substance: ATENOLOL
     Dosage: 2 DOSAGE FORMS PER DAY
     Dates: start: 20190423
  3. COLCHICINE. [Concomitant]
     Active Substance: COLCHICINE
     Dosage: FOR 1ST  4 WEEKS OF ALLOPURINOL, 2 DOSAGE FORMS PER DAY
     Dates: start: 20190723
  4. HYDROXOCOBALAMIN [Concomitant]
     Active Substance: HYDROXOCOBALAMIN
     Dosage: USE AS DIRECTED
     Dates: start: 20190619
  5. DIGOXIN. [Concomitant]
     Active Substance: DIGOXIN
     Dosage: 1 DOSAGE FORMS PER DAY
     Dates: start: 20190423
  6. LANSOPRAZOLE. [Concomitant]
     Active Substance: LANSOPRAZOLE
     Dosage: 1 DOSAGE FORMS PER DAY
     Dates: start: 20190423
  7. ALLOPURINOL. [Suspect]
     Active Substance: ALLOPURINOL
     Dosage: 100 MG PER DAY
     Dates: start: 20190723

REACTIONS (1)
  - Rash generalised [Unknown]

NARRATIVE: CASE EVENT DATE: 20190812
